FAERS Safety Report 7010783-2 (Version None)
Quarter: 2010Q3

REPORT INFORMATION
  Report Type: 
  Country: None (occurrence: None)
  Receive Date: 20100923
  Receipt Date: 20100914
  Transmission Date: 20110219
  Serious: No
  Sender: FDA-Public Use
  Company Number: US-PFIZER INC-2010116569

PATIENT
  Sex: Male
  Weight: 72.562 kg

DRUGS (1)
  1. XALATAN [Suspect]
     Indication: GLAUCOMA
     Dosage: ONE DROP IN BOTH THE EYES AT NIGHT
     Route: 047
     Dates: start: 20090101

REACTIONS (1)
  - FATIGUE [None]
